FAERS Safety Report 11321101 (Version 1)
Quarter: 2015Q3

REPORT INFORMATION
  Report Type: Spontaneous
  Country: US (occurrence: None)
  Receive Date: 20150728
  Receipt Date: 20150728
  Transmission Date: 20151125
  Serious: No
  Sender: FDA-Public Use
  Company Number: None

PATIENT
  Age: 62 Year
  Sex: Female

DRUGS (12)
  1. AMPYRA [Suspect]
     Active Substance: DALFAMPRIDINE
     Indication: MULTIPLE SCLEROSIS
     Route: 048
     Dates: start: 201007
  2. AMITRIPTYLINE (ELAVIL) [Concomitant]
  3. TECFIDERA [Concomitant]
     Active Substance: DIMETHYL FUMARATE
  4. LISINOPRIL (PRINIVIL/ZESTRIL) [Concomitant]
  5. VENLAFAXINE (EFFEXOR XR) [Concomitant]
  6. LIORESAL [Concomitant]
     Active Substance: BACLOFEN
  7. OXYBUTYNIN (DITROPAN) [Concomitant]
  8. DOCUSATE SODIUM (COLACE) [Concomitant]
  9. GABAPENTIN (NEURONTIN) [Concomitant]
  10. ASPIRIN (ECOTRIN) [Concomitant]
  11. LACTOBACILLUS RHAMNOSUS (PROBIOTIC) [Concomitant]
  12. DOLOPHINE [Concomitant]
     Active Substance: METHADONE HYDROCHLORIDE

REACTIONS (1)
  - Colon adenoma [None]

NARRATIVE: CASE EVENT DATE: 20150717
